FAERS Safety Report 4611391-0 (Version None)
Quarter: 2005Q1

REPORT INFORMATION
  Report Type: 
  Country: None (occurrence: None)
  Receive Date: 20050317
  Receipt Date: 20041020
  Transmission Date: 20050727
  Serious: Yes (Death, Other)
  Sender: FDA-Public Use
  Company Number: PHBS2004BR13888

PATIENT
  Age: 23 Year
  Sex: Male

DRUGS (1)
  1. GLEEVEC [Suspect]
     Indication: BONE SARCOMA
     Dosage: 400 MG, QD
     Route: 048

REACTIONS (8)
  - FEBRILE NEUTROPENIA [None]
  - HEPATIC FAILURE [None]
  - METASTASES TO LUNG [None]
  - METASTATIC NEOPLASM [None]
  - PLEURODESIS [None]
  - PNEUMONIA [None]
  - PNEUMOTHORAX [None]
  - RESPIRATORY FAILURE [None]
